FAERS Safety Report 8384904-3 (Version None)
Quarter: 2012Q2

REPORT INFORMATION
  Report Type: 
  Country: None (occurrence: None)
  Receive Date: 20120524
  Receipt Date: 20120522
  Transmission Date: 20120825
  Serious: Yes (Hospitalization)
  Sender: FDA-Public Use
  Company Number: GXKR2012DE001794

PATIENT
  Age: 44 Year
  Sex: Male
  Weight: 54 kg

DRUGS (4)
  1. DOCETAXEL [Suspect]
     Indication: TONGUE CANCER METASTATIC
     Dosage: 100 MG/DAY
     Route: 042
     Dates: start: 20120510
  2. CISPLATIN [Suspect]
     Indication: TONGUE CANCER METASTATIC
     Dosage: 100 MG/DAY
     Route: 042
     Dates: start: 20120510
  3. 5-FU ^MEDAC^ [Suspect]
     Indication: TONGUE CANCER METASTATIC
     Dosage: 1214 MG/DAY
     Route: 042
     Dates: start: 20120510, end: 20120514
  4. CETUXIMAB [Suspect]
     Indication: TONGUE CANCER METASTATIC
     Dates: start: 20120510, end: 20120518

REACTIONS (3)
  - MUCOSAL INFLAMMATION [None]
  - GENERAL PHYSICAL HEALTH DETERIORATION [None]
  - DIARRHOEA [None]
